FAERS Safety Report 21974685 (Version 1)
Quarter: 2023Q1

REPORT INFORMATION
  Report Type: Spontaneous
  Country: US (occurrence: None)
  Receive Date: 20230208
  Receipt Date: 20230208
  Transmission Date: 20230418
  Serious: Yes (Disabling)
  Sender: FDA-Public Use
  Company Number: None

PATIENT
  Age: 45 Year
  Sex: Male
  Weight: 90 kg

DRUGS (2)
  1. ARTIFICIAL TEARS LUBRICANT EYE DROPS (CARBOXYMETHYLCELLULOSE SODIUM) [Suspect]
     Active Substance: CARBOXYMETHYLCELLULOSE SODIUM
     Indication: Dry eye
     Dosage: OTHER QUANTITY : 30 DROP(S);?FREQUENCY : AS NEEDED;?
     Route: 047
     Dates: start: 20220928, end: 20230208
  2. ARMOUR THYROID [Concomitant]
     Active Substance: THYROID, PORCINE

REACTIONS (8)
  - Dry eye [None]
  - Vision blurred [None]
  - Eye discharge [None]
  - Eye pain [None]
  - Conjunctivitis [None]
  - Illness [None]
  - Recalled product administered [None]
  - Liquid product physical issue [None]

NARRATIVE: CASE EVENT DATE: 20220928
